FAERS Safety Report 9525635 (Version 1)
Quarter: 2013Q3

REPORT INFORMATION
  Report Type: Spontaneous
  Country: US (occurrence: US)
  Receive Date: 20130916
  Receipt Date: 20130916
  Transmission Date: 20140515
  Serious: No
  Sender: FDA-Public Use
  Company Number: US-B.I. PHARMACEUTICALS,INC./RIDGEFIELD-2013-BI-27536BP

PATIENT
  Age: 79 Year
  Sex: Female

DRUGS (3)
  1. SPIRIVA [Suspect]
     Indication: CHRONIC OBSTRUCTIVE PULMONARY DISEASE
     Dosage: 18 MCG
     Route: 048
  2. XOPENEX [Concomitant]
     Route: 055
  3. TRIAMCINOLONE NASAL SPRAY [Concomitant]
     Route: 045

REACTIONS (2)
  - Skin burning sensation [Not Recovered/Not Resolved]
  - Incorrect route of drug administration [Recovered/Resolved]
